FAERS Safety Report 8411986 (Version 8)
Quarter: 2012Q4

REPORT INFORMATION
  Report Type: 
  Country: US (occurrence: US)
  Receive Date: 20120217
  Receipt Date: 20120917
  Transmission Date: 20130627
  Serious: Yes (Hospitalization, Other)
  Sender: FDA-Public Use
  Company Number: PHEH2012US003738

PATIENT
  Age: 37 None
  Sex: Male

DRUGS (9)
  1. GILENYA [Suspect]
     Indication: MULTIPLE SCLEROSIS
     Dosage: 0.5 mg, QD
     Route: 048
     Dates: start: 201109, end: 20120321
  2. VESICARE [Concomitant]
     Indication: BLADDER DISORDER
     Dosage: 10 mg, QD
  3. VESICARE [Concomitant]
     Dosage: 5 mg, BID (to 5 mg in the morning and 5 mg towards bedtime)
  4. BACLOFEN [Concomitant]
  5. NEURONTIN [Concomitant]
     Dosage: 600 mg, TID
  6. PROCARDIA [Concomitant]
  7. DIFLUCAN [Concomitant]
  8. FAMPRIDINE [Concomitant]
     Indication: GAIT DISTURBANCE
     Dosage: 10 mg, Q12H
     Dates: start: 201104
  9. LISINOPRIL [Concomitant]
     Dosage: UNK UKN, UNK

REACTIONS (26)
  - Skin discolouration [Recovered/Resolved]
  - Oedema peripheral [Recovering/Resolving]
  - Erythema [Recovered/Resolved]
  - Feeling hot [Unknown]
  - Pain in extremity [Unknown]
  - Paraesthesia [Unknown]
  - Squamous cell carcinoma [Recovered/Resolved with Sequelae]
  - Depression [Unknown]
  - Peripheral coldness [Recovered/Resolved]
  - Sensory loss [Unknown]
  - Nystagmus [Unknown]
  - Blood glucose increased [Unknown]
  - Anion gap decreased [Unknown]
  - Dry eye [Unknown]
  - Dysuria [Unknown]
  - Fatigue [Unknown]
  - Muscle spasms [Unknown]
  - Muscular weakness [Unknown]
  - Dry mouth [Unknown]
  - Tongue coated [Unknown]
  - Neutrophil count increased [Unknown]
  - Vision blurred [Unknown]
  - Eosinophil count decreased [Unknown]
  - Lymphocyte count decreased [Unknown]
  - White blood cell count decreased [Unknown]
  - Alanine aminotransferase increased [Unknown]
